FAERS Safety Report 20602817 (Version 1)
Quarter: 2022Q1

REPORT INFORMATION
  Report Type: Report from Study
  Country: PH (occurrence: PH)
  Receive Date: 20220316
  Receipt Date: 20220316
  Transmission Date: 20220424
  Serious: Yes (Death, Other)
  Sender: FDA-Public Use
  Company Number: PH-PFIZER INC-202200404651

PATIENT
  Age: 25 Year
  Sex: Male

DRUGS (1)
  1. BOSUTINIB [Suspect]
     Active Substance: BOSUTINIB
     Indication: Chronic myeloid leukaemia
     Dosage: 500 MG

REACTIONS (8)
  - Death [Fatal]
  - Hypertension [Unknown]
  - Second primary malignancy [Unknown]
  - Brain neoplasm [Unknown]
  - Haemorrhage [Unknown]
  - Chest pain [Unknown]
  - Headache [Unknown]
  - Dysarthria [Unknown]

NARRATIVE: CASE EVENT DATE: 20220313
